FAERS Safety Report 4797466-4 (Version None)
Quarter: 2005Q4

REPORT INFORMATION
  Report Type: 
  Country: None (occurrence: None)
  Receive Date: 20051006
  Receipt Date: 20051006
  Transmission Date: 20060501
  Serious: Yes (Life-Threatening, Hospitalization)
  Sender: FDA-Public Use
  Company Number: None

PATIENT
  Age: 24 Year
  Sex: Female
  Weight: 70.3075 kg

DRUGS (1)
  1. TRIPHASIL-28 [Suspect]
     Indication: ORAL CONTRACEPTION
     Dosage: 1 TABLET/DAY    STARTED 1 MONTH AGO

REACTIONS (2)
  - CHEST PAIN [None]
  - PULMONARY EMBOLISM [None]
